FAERS Safety Report 6398580-2 (Version None)
Quarter: 2009Q4

REPORT INFORMATION
  Report Type: 
  Country: None (occurrence: None)
  Receive Date: 20091007
  Receipt Date: 20090922
  Transmission Date: 20100525
  Serious: Yes (Other)
  Sender: FDA-Public Use
  Company Number: 2009AP002939

PATIENT
  Age: 60 Year
  Sex: Female

DRUGS (6)
  1. SERTRALINE HYDROCHLORIDE [Suspect]
     Indication: DEPRESSION
     Dosage: 25 MG, QD;
     Dates: start: 20090216, end: 20090404
  2. ASPIRIN [Concomitant]
  3. INSULIN ZINC SUSPENSION (INSULIN ZINC SUSPENSION) [Concomitant]
  4. LEVOTHYROXINE SODIUM [Concomitant]
  5. OLMESARTAN MEDOXOMIL [Concomitant]
  6. MACROGOL (MACROGOL) [Concomitant]

REACTIONS (13)
  - ABNORMAL DREAMS [None]
  - AGITATION [None]
  - AMNESIA [None]
  - ARTHRALGIA [None]
  - DIZZINESS [None]
  - DYSPEPSIA [None]
  - EAR PAIN [None]
  - EPILEPSY [None]
  - EYE DISORDER [None]
  - GRAND MAL CONVULSION [None]
  - HEADACHE [None]
  - PARAESTHESIA ORAL [None]
  - SWOLLEN TONGUE [None]
